FAERS Safety Report 9135812 (Version 1)
Quarter: 2013Q1

REPORT INFORMATION
  Report Type: Spontaneous
  Country: US (occurrence: US)
  Receive Date: 20130304
  Receipt Date: 20130304
  Transmission Date: 20140127
  Serious: No
  Sender: FDA-Public Use
  Company Number: US-ABBOTT-12P-163-1008228-00

PATIENT
  Age: 70 Year
  Sex: Male
  Weight: 86.26 kg

DRUGS (2)
  1. ANDROGEL [Suspect]
     Indication: BLOOD TESTOSTERONE DECREASED
     Dates: end: 201207
  2. ANDROGEL [Suspect]
     Indication: BLOOD TESTOSTERONE DECREASED
     Dosage: TWO PUMPS DAILY
     Dates: start: 201207, end: 201209

REACTIONS (1)
  - Prostatic specific antigen increased [Recovered/Resolved]
